FAERS Safety Report 9272170 (Version 1)
Quarter: 2013Q2

REPORT INFORMATION
  Report Type: Spontaneous
  Country: US (occurrence: US)
  Receive Date: 20130506
  Receipt Date: 20130506
  Transmission Date: 20140414
  Serious: Yes (Death)
  Sender: FDA-Public Use
  Company Number: CHPA2013US007660

PATIENT
  Age: 79 Year
  Sex: Male

DRUGS (1)
  1. MYOFLEX ANALGESIC CREME [Suspect]
     Indication: CANCER PAIN
     Dosage: UNK, UNK
     Route: 061
     Dates: end: 1997

REACTIONS (2)
  - Neoplasm malignant [Fatal]
  - Off label use [Unknown]
